FAERS Safety Report 9842788 (Version 1)
Quarter: 2014Q1

REPORT INFORMATION
  Report Type: Spontaneous
  Country: SE (occurrence: SE)
  Receive Date: 20140124
  Receipt Date: 20140124
  Transmission Date: 20141002
  Serious: Yes (Other)
  Sender: FDA-Public Use
  Company Number: SE-MERCK-1401SWE005527

PATIENT
  Age: 56 Year
  Sex: Female

DRUGS (1)
  1. AERIUS [Suspect]
     Route: 048

REACTIONS (6)
  - Throat irritation [Recovered/Resolved]
  - Pharyngeal oedema [Recovered/Resolved]
  - Erythema [Recovered/Resolved]
  - Tongue discolouration [Recovered/Resolved]
  - Tongue blistering [Recovered/Resolved]
  - Pruritus [Recovered/Resolved]
